FAERS Safety Report 19681168 (Version 2)
Quarter: 2021Q3

REPORT INFORMATION
  Report Type: Spontaneous
  Country: US (occurrence: US)
  Receive Date: 20210810
  Receipt Date: 20210919
  Transmission Date: 20211014
  Serious: Yes (Other)
  Sender: FDA-Public Use
  Company Number: US-ROCHE-2885696

PATIENT
  Age: 60 Year
  Sex: Female
  Weight: 90.8 kg

DRUGS (4)
  1. BETADINE [Suspect]
     Active Substance: POVIDONE-IODINE
     Indication: PRODUCT USED FOR UNKNOWN INDICATION
     Route: 065
  2. LUCENTIS [Suspect]
     Active Substance: RANIBIZUMAB
     Indication: PRODUCT USED FOR UNKNOWN INDICATION
     Dosage: ONGOING: NO; RIGHT EYE
     Route: 031
     Dates: start: 20210729
  3. EYLEA [Concomitant]
     Active Substance: AFLIBERCEPT
     Dosage: LEFT EYE
     Dates: start: 2019
  4. AVASTIN [Suspect]
     Active Substance: BEVACIZUMAB
     Indication: PRODUCT USED FOR UNKNOWN INDICATION
     Dosage: LEFT AND RIGHT EYE ;ONGOING: UNKNOWN
     Route: 031
     Dates: start: 2019

REACTIONS (9)
  - Vision blurred [Unknown]
  - Eye haemorrhage [Unknown]
  - Rhinorrhoea [Unknown]
  - Eye discharge [Unknown]
  - Choroidal effusion [Unknown]
  - Eye pain [Not Recovered/Not Resolved]
  - Drug ineffective [Unknown]
  - Swelling [Not Recovered/Not Resolved]
  - Oropharyngeal pain [Unknown]

NARRATIVE: CASE EVENT DATE: 20210729
